FAERS Safety Report 8845253 (Version 1)
Quarter: 2012Q4

REPORT INFORMATION
  Report Type: 
  Country: CO (occurrence: CO)
  Receive Date: 20121017
  Receipt Date: 20121017
  Transmission Date: 20130627
  Serious: Yes (Death, Hospitalization)
  Sender: FDA-Public Use
  Company Number: CO-BRISTOL-MYERS SQUIBB COMPANY-17027467

PATIENT
  Age: 81 Year
  Sex: Female

DRUGS (1)
  1. APROVEL [Suspect]
     Indication: HYPERTENSION
     Route: 048
     Dates: end: 20120713

REACTIONS (1)
  - Cerebrovascular accident [Fatal]
